FAERS Safety Report 23951271 (Version 10)
Quarter: 2025Q2

REPORT INFORMATION
  Report Type: Report from Study
  Country: CA (occurrence: CA)
  Receive Date: 20240607
  Receipt Date: 20250611
  Transmission Date: 20250716
  Serious: Yes (Other)
  Sender: ROCHE
  Company Number: CA-ROCHE-2145847

PATIENT
  Age: 61 Year
  Sex: Female
  Weight: 108 kg

DRUGS (46)
  1. ACTEMRA [Suspect]
     Active Substance: TOCILIZUMAB
     Indication: Giant cell arteritis
     Route: 042
     Dates: start: 20140808, end: 20140808
  2. ACTEMRA [Suspect]
     Active Substance: TOCILIZUMAB
     Indication: Giant cell arteritis
     Route: 042
     Dates: start: 20140905, end: 20150216
  3. ACTEMRA [Suspect]
     Active Substance: TOCILIZUMAB
     Dosage: ON 17/JUN/2020, SHE RECEIVED HER LATEST INFUSION.
     Route: 042
     Dates: start: 20180329, end: 20200717
  4. ACTEMRA [Suspect]
     Active Substance: TOCILIZUMAB
     Route: 042
     Dates: start: 20210409, end: 20210409
  5. ACTEMRA [Suspect]
     Active Substance: TOCILIZUMAB
     Dosage: ONGOING
     Route: 042
     Dates: start: 20210507
  6. ACTEMRA [Suspect]
     Active Substance: TOCILIZUMAB
     Dosage: 12 TH INFUSION
     Route: 042
     Dates: start: 20180619
  7. ACTEMRA [Suspect]
     Active Substance: TOCILIZUMAB
     Route: 042
     Dates: start: 2018
  8. ACTEMRA [Suspect]
     Active Substance: TOCILIZUMAB
     Route: 042
     Dates: start: 20180717
  9. ACTEMRA [Suspect]
     Active Substance: TOCILIZUMAB
     Route: 042
  10. ACTEMRA [Suspect]
     Active Substance: TOCILIZUMAB
     Route: 042
  11. ACTEMRA [Suspect]
     Active Substance: TOCILIZUMAB
     Route: 042
  12. ACTEMRA [Suspect]
     Active Substance: TOCILIZUMAB
     Route: 042
  13. ACTEMRA [Suspect]
     Active Substance: TOCILIZUMAB
     Route: 042
  14. ACTEMRA [Suspect]
     Active Substance: TOCILIZUMAB
     Route: 042
  15. ACTEMRA [Suspect]
     Active Substance: TOCILIZUMAB
     Route: 042
  16. ACTEMRA [Suspect]
     Active Substance: TOCILIZUMAB
     Route: 042
  17. ACTEMRA [Suspect]
     Active Substance: TOCILIZUMAB
     Route: 042
  18. ACTEMRA [Suspect]
     Active Substance: TOCILIZUMAB
     Route: 042
  19. ACTEMRA [Suspect]
     Active Substance: TOCILIZUMAB
     Route: 042
  20. ACTEMRA [Suspect]
     Active Substance: TOCILIZUMAB
     Route: 042
  21. ACTEMRA [Suspect]
     Active Substance: TOCILIZUMAB
     Route: 042
  22. ACTEMRA [Suspect]
     Active Substance: TOCILIZUMAB
     Route: 042
  23. ACTEMRA [Suspect]
     Active Substance: TOCILIZUMAB
     Route: 042
  24. ACTEMRA [Suspect]
     Active Substance: TOCILIZUMAB
     Route: 042
  25. ACTEMRA [Suspect]
     Active Substance: TOCILIZUMAB
     Route: 042
  26. ACTEMRA ACTPEN [Suspect]
     Active Substance: TOCILIZUMAB
     Indication: Product used for unknown indication
     Route: 058
     Dates: start: 2015
  27. ACTEMRA ACTPEN [Suspect]
     Active Substance: TOCILIZUMAB
     Route: 058
     Dates: start: 20140905
  28. ACTEMRA ACTPEN [Suspect]
     Active Substance: TOCILIZUMAB
     Route: 058
  29. ALENDRONATE [Concomitant]
     Active Substance: ALENDRONATE SODIUM
  30. AMLODIPINE [Concomitant]
     Active Substance: AMLODIPINE BESYLATE
  31. INSULIN NOS [Concomitant]
     Active Substance: INSULIN NOS
     Indication: Product used for unknown indication
  32. ASPIRIN [Concomitant]
     Active Substance: ASPIRIN
  33. BISOPROLOL [Concomitant]
     Active Substance: BISOPROLOL
  34. CALCIUM [Concomitant]
     Active Substance: CALCIUM
  35. CORTEF [Concomitant]
     Active Substance: HYDROCORTISONE
  36. DOMPERIDONE [Concomitant]
     Active Substance: DOMPERIDONE
  37. DULOXETINE [Concomitant]
     Active Substance: DULOXETINE
  38. OZEMPIC [Concomitant]
     Active Substance: SEMAGLUTIDE
     Indication: Diabetes mellitus
     Dates: start: 20210615
  39. PANTOPRAZOLE [Concomitant]
     Active Substance: PANTOPRAZOLE
  40. FENTANYL [Concomitant]
     Active Substance: FENTANYL
  41. PREDNISONE [Concomitant]
     Active Substance: PREDNISONE
  42. SYNTHROID [Concomitant]
     Active Substance: LEVOTHYROXINE SODIUM
  43. HYDROCHLOROTHIAZIDE\VALSARTAN [Concomitant]
     Active Substance: HYDROCHLOROTHIAZIDE\VALSARTAN
  44. ZOPICLONE [Concomitant]
     Active Substance: ZOPICLONE
  45. IRON [Concomitant]
     Active Substance: IRON
     Indication: Anaemia
     Route: 042
  46. CORTISONE [Concomitant]
     Active Substance: CORTISONE

REACTIONS (33)
  - Abscess oral [Unknown]
  - Off label use [Unknown]
  - Sinusitis [Recovered/Resolved]
  - Oxygen saturation decreased [Unknown]
  - Nasopharyngitis [Recovered/Resolved]
  - Abdominal pain upper [Recovered/Resolved]
  - Urinary tract infection [Recovered/Resolved]
  - Blood pressure diastolic abnormal [Unknown]
  - Gastroenteritis [Recovered/Resolved]
  - Blood pressure diastolic decreased [Unknown]
  - Arthralgia [Unknown]
  - Drug ineffective [Unknown]
  - Blood iron decreased [Unknown]
  - Fatigue [Recovered/Resolved]
  - Dizziness [Unknown]
  - Polyp [Unknown]
  - Hand-foot-and-mouth disease [Recovered/Resolved]
  - Disability assessment scale score increased [Not Recovered/Not Resolved]
  - Tooth abscess [Not Recovered/Not Resolved]
  - Weight increased [Unknown]
  - Pertussis [Recovered/Resolved]
  - Arthralgia [Unknown]
  - Fall [Unknown]
  - Back pain [Recovered/Resolved]
  - Contusion [Recovered/Resolved]
  - Diarrhoea [Recovered/Resolved]
  - Pain [Unknown]
  - Gait disturbance [Unknown]
  - Urinary incontinence [Unknown]
  - Haemoglobin decreased [Unknown]
  - Asthenia [Unknown]
  - Anaemia [Unknown]
  - Fatigue [Unknown]

NARRATIVE: CASE EVENT DATE: 20180601
